FAERS Safety Report 5841139-3 (Version None)
Quarter: 2008Q3

REPORT INFORMATION
  Report Type: 
  Country: None (occurrence: None)
  Receive Date: 20080811
  Receipt Date: 20080811
  Transmission Date: 20090109
  Serious: No
  Sender: FDA-Public Use
  Company Number: None

PATIENT
  Sex: Female
  Weight: 47.3 kg

DRUGS (4)
  1. FLUOROURACIL [Suspect]
     Dosage: 4116 MG
  2. CISPLATIN [Suspect]
     Dosage: 88 MG
  3. ERBITUX [Suspect]
     Dosage: 1324 MG
  4. ELLENCE [Suspect]
     Dosage: 74 MG

REACTIONS (1)
  - NEUTROPHIL COUNT DECREASED [None]
